FAERS Safety Report 5936369-6 (Version None)
Quarter: 2008Q4

REPORT INFORMATION
  Report Type: 
  Country: None (occurrence: None)
  Receive Date: 20081030
  Receipt Date: 20081023
  Transmission Date: 20090506
  Serious: Yes (Hospitalization)
  Sender: FDA-Public Use
  Company Number: FR-ASTRAZENECA-2008CG01555

PATIENT
  Age: 13345 Day
  Sex: Male
  Weight: 67 kg

DRUGS (3)
  1. NEXIUM [Suspect]
     Indication: EROSIVE DUODENITIS
     Route: 048
     Dates: start: 20080524, end: 20080526
  2. IXPRIM [Suspect]
     Dosage: 650 + 75 THREE TIMES A DAY
     Route: 048
     Dates: start: 20080524, end: 20080526
  3. BI-PROFENID [Suspect]
     Route: 048
     Dates: start: 20080524, end: 20080526

REACTIONS (1)
  - HAEMOLYTIC ANAEMIA [None]
